FAERS Safety Report 9093147 (Version 3)
Quarter: 2013Q1

REPORT INFORMATION
  Report Type: Spontaneous
  Country: BR (occurrence: BR)
  Receive Date: 20130218
  Receipt Date: 20130318
  Transmission Date: 20140127
  Serious: Yes (Other)
  Sender: FDA-Public Use
  Company Number: BR-ROCHE-1190784

PATIENT
  Sex: Female
  Weight: 79 kg

DRUGS (11)
  1. XOLAIR [Suspect]
     Indication: ASTHMA
     Route: 058
     Dates: start: 201103
  2. XOLAIR [Suspect]
     Route: 058
     Dates: start: 20130117
  3. FORASEQ [Concomitant]
     Dosage: 50/500 UG
     Route: 065
  4. BAMIFIX [Concomitant]
     Route: 065
     Dates: start: 201212
  5. LOSARTAN [Concomitant]
     Route: 065
  6. HYDROCHLOROTHIAZIDE [Concomitant]
     Route: 065
     Dates: start: 201212
  7. LIDOCAINE [Concomitant]
     Route: 065
  8. SERETIDE [Concomitant]
     Dosage: 50/500 UKN
     Route: 065
  9. PONDERA [Concomitant]
     Route: 065
  10. MONTELUKAST SODIUM [Concomitant]
     Route: 065
     Dates: start: 201212
  11. PRELONE [Concomitant]
     Route: 065

REACTIONS (14)
  - Pulmonary mass [Not Recovered/Not Resolved]
  - Depression [Recovered/Resolved]
  - Chest pain [Not Recovered/Not Resolved]
  - Feeling abnormal [Unknown]
  - Blood pressure inadequately controlled [Recovered/Resolved]
  - Skin discolouration [Not Recovered/Not Resolved]
  - Pulmonary function test abnormal [Not Recovered/Not Resolved]
  - Dyspnoea [Recovering/Resolving]
  - Asphyxia [Recovering/Resolving]
  - Depressed mood [Recovering/Resolving]
  - Back pain [Not Recovered/Not Resolved]
  - Pain in extremity [Not Recovered/Not Resolved]
  - Swelling [Recovered/Resolved]
  - Fatigue [Recovering/Resolving]
